FAERS Safety Report 25921815 (Version 1)
Quarter: 2025Q4

REPORT INFORMATION
  Report Type: Spontaneous
  Country: US (occurrence: US)
  Receive Date: 20251014
  Receipt Date: 20251014
  Transmission Date: 20260117
  Serious: No
  Sender: ABBVIE
  Company Number: US-ABBVIE-6500016

PATIENT
  Age: 70 Year
  Sex: Female
  Weight: 80 kg

DRUGS (7)
  1. SKYRIZI [Suspect]
     Active Substance: RISANKIZUMAB-RZAA
     Indication: Crohn^s disease
     Dosage: FORM STRENGTH: 180 MG
     Route: 058
  2. SKYRIZI [Suspect]
     Active Substance: RISANKIZUMAB-RZAA
     Indication: Crohn^s disease
     Dosage: FORM STRENGTH: 600 MG
     Route: 042
     Dates: start: 2024
  3. ATORVASTATIN [Concomitant]
     Active Substance: ATORVASTATIN
     Indication: Blood cholesterol
     Dosage: 40 MILLIGRAM
  4. ASPIRIN [Concomitant]
     Active Substance: ASPIRIN
     Indication: Product used for unknown indication
     Dosage: LOW DOSE. INDICATION: TO KEEP PLATELETS GOING THROUGH THE VEINS AND ARTERIES
  5. VITAMIN D [Concomitant]
     Active Substance: VITAMIN D NOS
     Indication: Bone disorder
  6. NEXIUM [Concomitant]
     Active Substance: ESOMEPRAZOLE MAGNESIUM
     Indication: Dyspepsia
  7. FISH OIL [Concomitant]
     Active Substance: FISH OIL
     Indication: Cardiac disorder

REACTIONS (3)
  - Injection site papule [Recovered/Resolved]
  - Injection site papule [Recovering/Resolving]
  - Device issue [Not Recovered/Not Resolved]

NARRATIVE: CASE EVENT DATE: 20251010
